FAERS Safety Report 14216546 (Version 4)
Quarter: 2017Q4

REPORT INFORMATION
  Report Type: Spontaneous
  Country: GB (occurrence: GB)
  Receive Date: 20171122
  Receipt Date: 20171226
  Transmission Date: 20180321
  Serious: Yes (Hospitalization, Disabling, Other)
  Sender: FDA-Public Use
  Company Number: GB-SA-2017SA229167

PATIENT
  Age: 6 Year
  Sex: Male

DRUGS (4)
  1. MYOZYME [Suspect]
     Active Substance: ALGLUCOSIDASE ALFA
     Dosage: DOSE: 400MG ALTERNATING WITH 450MG WEEKLY
     Route: 041
     Dates: start: 20120203, end: 20171108
  2. AMETOP [Concomitant]
     Route: 061
  3. HEPARIN SODIUM. [Concomitant]
     Active Substance: HEPARIN SODIUM
     Dosage: DOSE: 2X PER INFUSION, 100 IU/MML 2ML INJECTION
     Route: 042
  4. MYOZYME [Suspect]
     Active Substance: ALGLUCOSIDASE ALFA
     Dosage: DOSE: 400MG ALTERNATING WITH 450MG WEEKLY
     Route: 041
     Dates: start: 201711

REACTIONS (5)
  - Mobility decreased [Unknown]
  - Device dislocation [Recovered/Resolved]
  - Catheter site haemorrhage [Unknown]
  - Lower respiratory tract infection [Recovered/Resolved]
  - Product use issue [Unknown]

NARRATIVE: CASE EVENT DATE: 201711
